FAERS Safety Report 13115854 (Version 2)
Quarter: 2017Q3

REPORT INFORMATION
  Report Type: Report from Study
  Country: US (occurrence: US)
  Receive Date: 20170115
  Receipt Date: 20170717
  Transmission Date: 20171127
  Serious: Yes (Other)
  Sender: FDA-Public Use
  Company Number: US-MALLINCKRODT-T201606225

PATIENT
  Sex: Male

DRUGS (2)
  1. REPOSITORY CORTICOTROPIN INJECTION [Suspect]
     Active Substance: CORTICOTROPIN
     Indication: GLOMERULONEPHRITIS MEMBRANOUS
     Dosage: 80 UNITS / 1 ML, 2 TIMES PER WEEK (WEDNESDAY AND SATURDAY)
     Route: 058
     Dates: start: 20160803
  2. REPOSITORY CORTICOTROPIN INJECTION [Suspect]
     Active Substance: CORTICOTROPIN
     Indication: PROTEINURIA
     Dosage: 80 UNITS/ML, 1 TIME WEEKLY, SATURDAY
     Route: 058
     Dates: start: 20160803

REACTIONS (2)
  - Red blood cell count decreased [Unknown]
  - Hyperglycaemia [Not Recovered/Not Resolved]
